FAERS Safety Report 9233965 (Version 1)
Quarter: 2013Q2

REPORT INFORMATION
  Report Type: Spontaneous
  Country: US (occurrence: US)
  Receive Date: 20130416
  Receipt Date: 20130416
  Transmission Date: 20140414
  Serious: No
  Sender: FDA-Public Use
  Company Number: US-BANPHARM-20120487

PATIENT
  Age: 50 Year
  Sex: Male
  Weight: 113.38 kg

DRUGS (5)
  1. NAPROXEN SODIUM 220MG [Suspect]
     Indication: BACK PAIN
     Dosage: 440 MG, BID
     Route: 048
     Dates: start: 20121121, end: 20121212
  2. MULTI VITAMIN [Concomitant]
  3. FLAXSEED OIL [Concomitant]
  4. VITAMIN D [Concomitant]
  5. FISH OIL [Concomitant]

REACTIONS (3)
  - Diarrhoea [Not Recovered/Not Resolved]
  - Incorrect dose administered [Unknown]
  - Incorrect drug administration duration [Unknown]
